FAERS Safety Report 5233865-4 (Version None)
Quarter: 2007Q1

REPORT INFORMATION
  Report Type: 
  Country: None (occurrence: None)
  Receive Date: 20070206
  Receipt Date: 20070126
  Transmission Date: 20070707
  Serious: Yes (Life-Threatening)
  Sender: FDA-Public Use
  Company Number: 430001L03ITA

PATIENT
  Age: 56 Year
  Sex: Male

DRUGS (3)
  1. NOVANTRONE [Suspect]
     Indication: MULTIPLE SCLEROSIS
     Dosage: 10 MG/M2, 1 IN 3 MONTHS, INTRAVENOUS NOS
     Route: 042
     Dates: start: 19980817, end: 20010130
  2. INTERFERON BETA (INTERFERON BETA) [Suspect]
     Dates: start: 20011101, end: 20020401
  3. CORTICOSTEROID NOS [Concomitant]

REACTIONS (4)
  - ACUTE PROMYELOCYTIC LEUKAEMIA [None]
  - DISSEMINATED INTRAVASCULAR COAGULATION [None]
  - PANCYTOPENIA [None]
  - PNEUMONIA [None]
